FAERS Safety Report 23095026 (Version 1)
Quarter: 2023Q4

REPORT INFORMATION
  Report Type: Spontaneous
  Country: US (occurrence: US)
  Receive Date: 20231023
  Receipt Date: 20231023
  Transmission Date: 20240110
  Serious: Yes (Death, Life-Threatening, Other)
  Sender: FDA-Public Use
  Company Number: US-drreddys-SPO/USA/23/0180262

PATIENT
  Age: 68 Year
  Sex: Female

DRUGS (2)
  1. DOCETAXEL [Suspect]
     Active Substance: DOCETAXEL
     Indication: Non-small cell lung cancer metastatic
     Dosage: 1 CYCLE
  2. DOCETAXEL [Suspect]
     Active Substance: DOCETAXEL
     Indication: Disease progression

REACTIONS (5)
  - Cardiac arrest [Fatal]
  - Electrocardiogram ST segment elevation [Fatal]
  - Hypereosinophilic syndrome [Fatal]
  - Cerebral haemorrhage [Fatal]
  - Cerebral infarction [Fatal]
